FAERS Safety Report 18886761 (Version 1)
Quarter: 2021Q1

REPORT INFORMATION
  Report Type: Other
  Country: SK (occurrence: SK)
  Receive Date: 20210212
  Receipt Date: 20210212
  Transmission Date: 20210420
  Serious: Yes (Other)
  Sender: FDA-Public Use
  Company Number: SK-BIODELIVERY SCIENCES INTERNATIONAL-2021BDSI0058

PATIENT
  Age: 52 Year
  Sex: Male

DRUGS (1)
  1. FENTANYL CITRATE. [Suspect]
     Active Substance: FENTANYL CITRATE
     Indication: PRODUCT USED FOR UNKNOWN INDICATION
     Dosage: UNKNOWN, UNKNOWN
     Route: 065

REACTIONS (4)
  - Facial pain [Unknown]
  - Apathy [Unknown]
  - Decreased appetite [Unknown]
  - Suicidal ideation [Unknown]
